FAERS Safety Report 7568445-9 (Version None)
Quarter: 2011Q2

REPORT INFORMATION
  Report Type: 
  Country: None (occurrence: None)
  Receive Date: 20110617
  Receipt Date: 20110608
  Transmission Date: 20111010
  Serious: Yes (Hospitalization)
  Sender: FDA-Public Use
  Company Number: TPA2011A02841

PATIENT
  Age: 65 Year
  Sex: Female
  Weight: 87.9978 kg

DRUGS (5)
  1. CRESTOR [Concomitant]
  2. CRESTOR [Concomitant]
  3. EDARBI [Suspect]
     Indication: HYPERTENSION
     Dosage: 80 MG, 1 IN 1 D, PER ORAL
     Route: 048
     Dates: start: 20110506, end: 20110531
  4. VESICARE [Concomitant]
  5. DILTIAZEM [Concomitant]

REACTIONS (10)
  - MALIGNANT HYPERTENSION [None]
  - TREATMENT NONCOMPLIANCE [None]
  - HEART RATE INCREASED [None]
  - VENTRICULAR ARRHYTHMIA [None]
  - HEART RATE IRREGULAR [None]
  - ECONOMIC PROBLEM [None]
  - ASTHENIA [None]
  - PLATELET COUNT DECREASED [None]
  - ATRIAL FIBRILLATION [None]
  - BLOOD POTASSIUM DECREASED [None]
